FAERS Safety Report 16478719 (Version 3)
Quarter: 2019Q4

REPORT INFORMATION
  Report Type: Report from Study
  Country: DE (occurrence: DE)
  Receive Date: 20190626
  Receipt Date: 20191225
  Transmission Date: 20200122
  Serious: Yes (Hospitalization, Other)
  Sender: FDA-Public Use
  Company Number: PHHY2019DE147052

PATIENT
  Sex: Male
  Weight: 95 kg

DRUGS (3)
  1. L-THYROXINE [Concomitant]
     Active Substance: LEVOTHYROXINE
     Indication: HYPOTHYROIDISM
     Dosage: 25 UG, UNK
     Route: 048
     Dates: start: 2017
  2. COSENTYX [Suspect]
     Active Substance: SECUKINUMAB
     Indication: PSORIASIS
     Dosage: 300 MG, QMO
     Route: 058
     Dates: start: 20190326
  3. IBUPROFEN. [Suspect]
     Active Substance: IBUPROFEN
     Indication: PRODUCT USED FOR UNKNOWN INDICATION
     Route: 065

REACTIONS (11)
  - Type IV hypersensitivity reaction [Unknown]
  - Sensitisation [Unknown]
  - C-reactive protein increased [Unknown]
  - Angioedema [Unknown]
  - Type I hypersensitivity [Recovered/Resolved]
  - Drug hypersensitivity [Unknown]
  - Allergy to chemicals [Unknown]
  - Erysipelas [Recovered/Resolved]
  - Conjunctivitis allergic [Recovered/Resolved]
  - Seasonal allergy [Recovered/Resolved]
  - Pharyngitis [Unknown]

NARRATIVE: CASE EVENT DATE: 20190603
